FAERS Safety Report 13627315 (Version 2)
Quarter: 2017Q3

REPORT INFORMATION
  Report Type: Report from Study
  Country: US (occurrence: US)
  Receive Date: 20170608
  Receipt Date: 20170707
  Transmission Date: 20171127
  Serious: Yes (Hospitalization, Other)
  Sender: FDA-Public Use
  Company Number: US-JNJFOC-20170511899

PATIENT
  Sex: Male

DRUGS (18)
  1. TOPROL XL [Concomitant]
     Active Substance: METOPROLOL SUCCINATE
  2. ALLOPURINOL. [Concomitant]
     Active Substance: ALLOPURINOL
  3. ACYCLOVIR. [Concomitant]
     Active Substance: ACYCLOVIR
  4. CYANOCOBALAMIN. [Concomitant]
     Active Substance: CYANOCOBALAMIN
  5. GLYCERYL TRINITRATE [Concomitant]
     Active Substance: NITROGLYCERIN
  6. BETAMETHASONE. [Concomitant]
     Active Substance: BETAMETHASONE
  7. XANAX [Concomitant]
     Active Substance: ALPRAZOLAM
  8. AMBIEN [Concomitant]
     Active Substance: ZOLPIDEM TARTRATE
  9. FOLIC ACID. [Concomitant]
     Active Substance: FOLIC ACID
  10. DIPHENHYDRAMINE. [Concomitant]
     Active Substance: DIPHENHYDRAMINE
  11. ALBUTEROL. [Concomitant]
     Active Substance: ALBUTEROL
  12. IMBRUVICA [Suspect]
     Active Substance: IBRUTINIB
     Indication: CHRONIC LYMPHOCYTIC LEUKAEMIA RECURRENT
     Route: 048
     Dates: start: 20170110, end: 2017
  13. IMBRUVICA [Suspect]
     Active Substance: IBRUTINIB
     Indication: CHRONIC LYMPHOCYTIC LEUKAEMIA RECURRENT
     Route: 048
     Dates: start: 20170109
  14. PREDNISONE. [Concomitant]
     Active Substance: PREDNISONE
  15. ZOCOR [Concomitant]
     Active Substance: SIMVASTATIN
  16. ASPIRIN. [Concomitant]
     Active Substance: ASPIRIN
  17. IMBRUVICA [Suspect]
     Active Substance: IBRUTINIB
     Indication: CHRONIC LYMPHOCYTIC LEUKAEMIA RECURRENT
     Route: 048
     Dates: start: 2017
  18. ATORVASTATIN CALCIUM. [Concomitant]
     Active Substance: ATORVASTATIN CALCIUM

REACTIONS (8)
  - Confusional state [Unknown]
  - Hypoaesthesia [Unknown]
  - Dysuria [Unknown]
  - Peripheral swelling [Unknown]
  - Constipation [Not Recovered/Not Resolved]
  - Anuria [Unknown]
  - Haemorrhage [Unknown]
  - Contusion [Unknown]
